FAERS Safety Report 8579787-2 (Version None)
Quarter: 2012Q3

REPORT INFORMATION
  Report Type: 
  Country: None (occurrence: None)
  Receive Date: 20120808
  Receipt Date: 20120803
  Transmission Date: 20120928
  Serious: Yes (Other)
  Sender: FDA-Public Use
  Company Number: US-UCBSA-062647

PATIENT
  Age: 80 Year
  Sex: Female
  Weight: 46 kg

DRUGS (8)
  1. CIMZIA [Suspect]
     Indication: CROHN'S DISEASE
     Route: 058
     Dates: start: 20090831
  2. CALCIUM CARBONATE/VITAMIN D [Concomitant]
     Dosage: 2 BID
     Route: 048
     Dates: start: 20100422
  3. CALCIUM CARBONATE/VITAMIN D [Concomitant]
     Indication: SUPPLEMENTATION THERAPY
  4. ACETAMINOPHEN [Concomitant]
     Indication: PAIN
     Dosage: 1000 MG Q6H (EVERY SIX HOURS) PRN
     Route: 048
     Dates: start: 20100421
  5. MULTI-VITAMIN [Concomitant]
     Indication: SUPPLEMENTATION THERAPY
     Dosage: 1 PO
     Route: 048
     Dates: start: 20090101
  6. NYSTATIN [Concomitant]
     Indication: FUNGAL INFECTION
     Dosage: POWDER
     Route: 061
     Dates: start: 20100422
  7. VANIQA [Concomitant]
     Indication: HAIR GROWTH ABNORMAL
     Dosage: 13.9%, TO CHIN AND UPPER LIP
     Route: 061
     Dates: start: 20120309
  8. METOPROLOL TARTRATE [Concomitant]
     Indication: HYPERTENSION
     Route: 048
     Dates: start: 20100422

REACTIONS (1)
  - BREAST CANCER [None]
